FAERS Safety Report 6146890-6 (Version None)
Quarter: 2009Q2

REPORT INFORMATION
  Report Type: 
  Country: None (occurrence: None)
  Receive Date: 20090403
  Receipt Date: 20090320
  Transmission Date: 20091009
  Serious: Yes (Life-Threatening, Hospitalization)
  Sender: FDA-Public Use
  Company Number: AE-2008-064

PATIENT
  Age: 77 Year
  Sex: Female
  Weight: 95 kg

DRUGS (9)
  1. LISINOPRIL [Suspect]
     Indication: HYPERTENSION
     Dosage: QD, ORAL
     Route: 048
  2. GLIBENCLAMIDE 1.75 MG TABLET [Suspect]
     Indication: TYPE 2 DIABETES MELLITUS
     Dosage: QD, ORAL
     Route: 048
  3. FURORESE (FUROSEMIDE) 60MG TABLET [Concomitant]
     Indication: RENAL IMPAIRMENT
     Dosage: QD, ORAL
     Route: 048
     Dates: start: 20020101, end: 20080808
  4. METFORMIN 500MG TABLET [Suspect]
     Indication: TYPE 2 DIABETES MELLITUS
     Dosage: BID, ORAL
     Route: 048
     Dates: start: 19950101
  5. METOPROLOL:  100MG PROLONGED-RELEASE TABLET [Suspect]
     Indication: HYPERTENSION
     Dosage: BID, ORAL
     Route: 048
     Dates: start: 19990101
  6. ACETYLSALICYLIC ACID SRT [Concomitant]
  7. PANTOPRAZOLE SODIUM [Concomitant]
  8. SIMVASTATIN [Concomitant]
  9. XIPAMIDE [Concomitant]

REACTIONS (2)
  - HYPOGLYCAEMIA [None]
  - RENAL FAILURE ACUTE [None]
